FAERS Safety Report 6407636-7 (Version None)
Quarter: 2009Q4

REPORT INFORMATION
  Report Type: 
  Country: None (occurrence: None)
  Receive Date: 20091020
  Receipt Date: 20091007
  Transmission Date: 20100525
  Serious: Yes (Other)
  Sender: FDA-Public Use
  Company Number: PHEH2009US13805

PATIENT
  Age: 55 Year
  Sex: Female
  Weight: 99.773 kg

DRUGS (23)
  1. RECLAST [Suspect]
     Indication: OSTEOPOROSIS PROPHYLAXIS
     Dosage: 5 MG, ONCE/SINGLE
     Dates: start: 20091001, end: 20091001
  2. CELEBREX [Concomitant]
     Dosage: UNK, UNK
  3. FLOVENT [Concomitant]
     Dosage: UNK, UNK
  4. ASTELIN [Concomitant]
     Dosage: UNK, UNK
  5. BYSTOLIC [Concomitant]
     Dosage: UNK, UNK
  6. DIOVAN HCT [Concomitant]
     Dosage: UNK, UNK
  7. ASPIRIN [Concomitant]
     Dosage: UNK, UNK
  8. PROTONIX [Concomitant]
     Dosage: UNK, UNK
  9. PROVENTIL-HFA [Concomitant]
     Dosage: UNK, UNK
  10. RHINOCORT (BECLOMETASONE DIPROPIONATE) [Concomitant]
     Dosage: UNK, UNK
  11. CRESTOR [Concomitant]
     Dosage: UNK, UNK
  12. EFFEXOR [Concomitant]
     Dosage: UNK, UNK
  13. SINGULAIR [Concomitant]
     Dosage: UNK, UNK
  14. GRAPE SEED [Concomitant]
     Dosage: UNK, UNK
  15. COQ10 [Concomitant]
     Dosage: UNK, UNK
  16. VITAMIN B COMPLEX CAP [Concomitant]
     Dosage: UNK, UNK
  17. BLACK COHOSH [Concomitant]
     Dosage: UNK, UNK
  18. CALCIUM W/MAGNESIUM [Concomitant]
     Dosage: UNK, UNK
  19. FISH OIL [Concomitant]
     Dosage: UNK, UNK
  20. FLAXSEED OIL [Concomitant]
     Dosage: UNJK, UNK
  21. VITAMIN E [Concomitant]
     Dosage: UNK, UNK
  22. MULTI-VITAMINS [Concomitant]
  23. SALVIA [Concomitant]
     Dosage: UNK, UNK

REACTIONS (9)
  - ARTHRALGIA [None]
  - EPISTAXIS [None]
  - HEADACHE [None]
  - HERPES ZOSTER [None]
  - IMMUNE SYSTEM DISORDER [None]
  - ORAL DISORDER [None]
  - PYREXIA [None]
  - RASH [None]
  - VOMITING [None]
